FAERS Safety Report 4854526-7 (Version None)
Quarter: 2005Q4

REPORT INFORMATION
  Report Type: 
  Country: None (occurrence: None)
  Receive Date: 20051213
  Receipt Date: 20051201
  Transmission Date: 20060501
  Serious: Yes (Hospitalization)
  Sender: FDA-Public Use
  Company Number: 2005152883

PATIENT
  Sex: Female
  Weight: 56 kg

DRUGS (3)
  1. SULFASALAZINE [Suspect]
     Indication: RHEUMATOID ARTHRITIS
     Dosage: 2 GRAM (500 MG, 4 IN 1 D) ORAL
     Route: 048
  2. PLAQUENIL [Concomitant]
  3. METHOTREXATE [Concomitant]

REACTIONS (6)
  - GASTROINTESTINAL DISORDER [None]
  - NAUSEA [None]
  - PAIN [None]
  - SOMNOLENCE [None]
  - VERTIGO [None]
  - VOMITING [None]
